FAERS Safety Report 7581393-3 (Version None)
Quarter: 2011Q2

REPORT INFORMATION
  Report Type: 
  Country: None (occurrence: None)
  Receive Date: 20110629
  Receipt Date: 20110615
  Transmission Date: 20111010
  Serious: Yes (Other)
  Sender: FDA-Public Use
  Company Number: PHHY2011US53291

PATIENT
  Sex: Male

DRUGS (2)
  1. DIOVAN HCT [Suspect]
     Dosage: 1 DF, QD
  2. DIOVAN HCT [Suspect]
     Dosage: SOMETIMES GIVES HIM A HIGHER DOSE OF DIOVAN HCT AND WAS TOLD TO CUT THEM IN HALF

REACTIONS (2)
  - WRONG TECHNIQUE IN DRUG USAGE PROCESS [None]
  - CEREBROVASCULAR ACCIDENT [None]
